FAERS Safety Report 21222906 (Version 1)
Quarter: 2022Q3

REPORT INFORMATION
  Report Type: Spontaneous
  Country: US (occurrence: None)
  Receive Date: 20220816
  Receipt Date: 20220816
  Transmission Date: 20221026
  Serious: Yes (Death, Life-Threatening, Hospitalization)
  Sender: FDA-Public Use
  Company Number: None

PATIENT
  Age: 70 Year
  Sex: Male
  Weight: 92.08 kg

DRUGS (1)
  1. EMPAGLIFLOZIN [Suspect]
     Active Substance: EMPAGLIFLOZIN
     Indication: Diabetes mellitus
     Dosage: 1 TAB EVERY DAY PO?
     Route: 048
     Dates: start: 20220405, end: 20220606

REACTIONS (4)
  - Euglycaemic diabetic ketoacidosis [None]
  - Oxygen saturation decreased [None]
  - Lung opacity [None]
  - Infection [None]

NARRATIVE: CASE EVENT DATE: 20220607
